FAERS Safety Report 18619506 (Version 1)
Quarter: 2020Q4

REPORT INFORMATION
  Report Type: Spontaneous
  Country: US (occurrence: US)
  Receive Date: 20201215
  Receipt Date: 20201215
  Transmission Date: 20210114
  Serious: Yes (Hospitalization)
  Sender: FDA-Public Use
  Company Number: US-ASTRAZENECA-2020SF65029

PATIENT
  Age: 4233 Week
  Sex: Female
  Weight: 70.3 kg

DRUGS (1)
  1. BYDUREON [Suspect]
     Active Substance: EXENATIDE
     Indication: TYPE 2 DIABETES MELLITUS
     Route: 058

REACTIONS (11)
  - Cardiac disorder [Unknown]
  - Aortic aneurysm [Unknown]
  - Blood glucose increased [Unknown]
  - Aortic rupture [Unknown]
  - Diabetes mellitus inadequate control [Not Recovered/Not Resolved]
  - Weight decreased [Not Recovered/Not Resolved]
  - Decreased appetite [Unknown]
  - Device leakage [Unknown]
  - Intentional device misuse [Unknown]
  - Nasopharyngitis [Unknown]
  - Wrong technique in device usage process [Unknown]

NARRATIVE: CASE EVENT DATE: 20201206
